FAERS Safety Report 23453883 (Version 1)
Quarter: 2024Q1

REPORT INFORMATION
  Report Type: Spontaneous
  Country: US (occurrence: US)
  Receive Date: 20240129
  Receipt Date: 20240129
  Transmission Date: 20240410
  Serious: Yes (Other)
  Sender: FDA-Public Use
  Company Number: US-DRL-USA-LIT/USA/24/0001315

PATIENT
  Age: 68 Year
  Sex: Male

DRUGS (9)
  1. GEMCITABINE [Suspect]
     Active Substance: GEMCITABINE
     Indication: Biphasic mesothelioma
     Dosage: 410 MG, FOUR CYCLES
  2. VINORELBINE [Suspect]
     Active Substance: VINORELBINE TARTRATE
     Indication: Biphasic mesothelioma
     Dosage: FOURTH LINE OF THERAPY
  3. PEMETREXED [Suspect]
     Active Substance: PEMETREXED
     Indication: Biphasic mesothelioma
  4. CISPLATIN [Suspect]
     Active Substance: CISPLATIN
     Indication: Biphasic mesothelioma
     Dosage: 57 MG, FOUR CYCLES
  5. IPILIMUMAB;NIVOLUMAB [Concomitant]
     Indication: Biphasic mesothelioma
     Dosage: IPILIMUMAB (63 MG)/NIVOLUMAB (180 MG)
  6. PREDNISONE [Concomitant]
     Active Substance: PREDNISONE
     Indication: Dermatitis exfoliative generalised
  7. PREDNISONE [Concomitant]
     Active Substance: PREDNISONE
     Indication: Rash
  8. METHYLPREDNISOLONE [Concomitant]
     Active Substance: METHYLPREDNISOLONE
     Indication: Drug eruption
  9. KAOMYCIN [Concomitant]
     Active Substance: KAOLIN\NEOMYCIN SULFATE
     Indication: Drug eruption

REACTIONS (2)
  - Disease progression [Unknown]
  - Treatment failure [Unknown]
